FAERS Safety Report 21148247 (Version 4)
Quarter: 2023Q2

REPORT INFORMATION
  Report Type: Spontaneous
  Country: US (occurrence: US)
  Receive Date: 20220729
  Receipt Date: 20230605
  Transmission Date: 20230722
  Serious: No
  Sender: FDA-Public Use
  Company Number: US-PFIZER INC-PV202200032603

PATIENT
  Age: 64 Year
  Sex: Female

DRUGS (2)
  1. IBRANCE [Suspect]
     Active Substance: PALBOCICLIB
     Indication: Bone cancer
     Dosage: TAKE 1 TABLET DAILY FOR 3 WEEKS ON, THEN 1 WEEK OFF
     Route: 048
     Dates: start: 20211016
  2. IBRANCE [Suspect]
     Active Substance: PALBOCICLIB
     Dosage: 7 DAYS ON AND 7 DAYS OFF FOR 21 DAY SUPPLY

REACTIONS (2)
  - Fatigue [Unknown]
  - Off label use [Unknown]
